FAERS Safety Report 4556276-3 (Version None)
Quarter: 2005Q1

REPORT INFORMATION
  Report Type: 
  Country: None (occurrence: None)
  Receive Date: 20050103
  Receipt Date: 20040816
  Transmission Date: 20050727
  Serious: Yes (Other)
  Sender: FDA-Public Use
  Company Number: 2004UW17500

PATIENT
  Age: 38 Year
  Sex: Male

DRUGS (2)
  1. TOPROL-XL [Suspect]
  2. CRESTOR [Suspect]
     Dosage: 10 MG PO
     Route: 048

REACTIONS (2)
  - PARAESTHESIA [None]
  - SWELLING FACE [None]
